FAERS Safety Report 5092156-5 (Version None)
Quarter: 2006Q3

REPORT INFORMATION
  Report Type: 
  Country: None (occurrence: None)
  Receive Date: 20060727
  Receipt Date: 20060418
  Transmission Date: 20061208
  Serious: Yes (Other)
  Sender: FDA-Public Use
  Company Number: 2006053090

PATIENT
  Age: 57 Year
  Sex: Female
  Weight: 110.6777 kg

DRUGS (15)
  1. LYRICA [Suspect]
     Indication: NEUROPATHY PERIPHERAL
     Dosage: 225 MG (75 MG,3 IN 1 D),ORAL
     Route: 048
     Dates: start: 20051101
  2. EFFEXOR XR [Concomitant]
  3. BENTYL [Concomitant]
  4. CLONAZEPAM [Concomitant]
  5. PROTONIX [Concomitant]
  6. VOLTAREN [Concomitant]
  7. TEMAZEPAM [Concomitant]
  8. MULTIVITAMIN [Concomitant]
  9. COZAAR [Concomitant]
  10. WELLBUTRIN [Concomitant]
  11. HYDROCODONE (HYDROCODONE) [Concomitant]
  12. TOPAMAX [Concomitant]
  13. PREMARIN [Concomitant]
  14. LIPITOR [Concomitant]
  15. BUFFERIN [Concomitant]

REACTIONS (2)
  - BLINDNESS TRANSIENT [None]
  - VISION BLURRED [None]
